FAERS Safety Report 21009647 (Version 1)
Quarter: 2022Q2

REPORT INFORMATION
  Report Type: Spontaneous
  Country: FR (occurrence: FR)
  Receive Date: 20220627
  Receipt Date: 20220627
  Transmission Date: 20220720
  Serious: Yes (Hospitalization)
  Sender: FDA-Public Use
  Company Number: None

PATIENT
  Age: 52 Year
  Sex: Male
  Weight: 95 kg

DRUGS (3)
  1. AMOXICILLIN [Suspect]
     Active Substance: AMOXICILLIN
     Indication: Skin infection
     Dosage: 4 DOSAGE FORM, QD
     Route: 048
     Dates: start: 20220529, end: 20220531
  2. AMPICILLIN [Suspect]
     Active Substance: AMPICILLIN
     Indication: Skin infection
     Dosage: 2 DOSAGE FORM, QD
     Route: 041
     Dates: start: 20220526, end: 20220529
  3. AUGMENTIN [Suspect]
     Active Substance: AMOXICILLIN\CLAVULANATE POTASSIUM
     Indication: Skin infection
     Dosage: 3 DOSAGE FORM, QD
     Route: 048
     Dates: start: 20220601, end: 20220602

REACTIONS (1)
  - Acute generalised exanthematous pustulosis [Recovering/Resolving]

NARRATIVE: CASE EVENT DATE: 20220602
